FAERS Safety Report 5121974-X (Version None)
Quarter: 2006Q4

REPORT INFORMATION
  Report Type: 
  Country: None (occurrence: None)
  Receive Date: 20061006
  Receipt Date: 20060929
  Transmission Date: 20070319
  Serious: Yes (Other)
  Sender: FDA-Public Use
  Company Number: DE-BRISTOL-MYERS SQUIBB COMPANY-13526710

PATIENT
  Sex: Female

DRUGS (1)
  1. CARBOPLATIN [Suspect]

REACTIONS (4)
  - ERYTHEMA [None]
  - EXTRAVASATION [None]
  - INDURATION [None]
  - SWELLING [None]
